FAERS Safety Report 5131272-6 (Version None)
Quarter: 2006Q4

REPORT INFORMATION
  Report Type: 
  Country: None (occurrence: None)
  Receive Date: 20061016
  Receipt Date: 20060619
  Transmission Date: 20070319
  Serious: Yes (Hospitalization, Other)
  Sender: FDA-Public Use
  Company Number: 2006029541

PATIENT
  Sex: Male

DRUGS (3)
  1. BEXTRA [Suspect]
     Indication: JOINT INJURY
     Dosage: (1 IN 1 D)
     Dates: start: 20030331
  2. ZANAFLEX [Concomitant]
  3. ALL OTHER THERAPEUTIC PRODUCTS (ALL OTHER THERAPEUTIC PRODUCTS) [Concomitant]

REACTIONS (9)
  - BLOOD ETHANOL [None]
  - BONE MARROW DISORDER [None]
  - BONE MARROW FAILURE [None]
  - FOLATE DEFICIENCY [None]
  - IDIOPATHIC THROMBOCYTOPENIC PURPURA [None]
  - IMMUNE SYSTEM DISORDER [None]
  - STEVENS-JOHNSON SYNDROME [None]
  - VIRAL INFECTION [None]
  - VITAMIN B12 DEFICIENCY [None]
